FAERS Safety Report 5679995-4 (Version None)
Quarter: 2008Q1

REPORT INFORMATION
  Report Type: 
  Country: None (occurrence: None)
  Receive Date: 20080325
  Receipt Date: 20080325
  Transmission Date: 20080703
  Serious: No
  Sender: FDA-Public Use
  Company Number: None

PATIENT
  Sex: Female
  Weight: 77 kg

DRUGS (1)
  1. AROMASIN [Suspect]
     Dosage: 725 MG
     Dates: end: 20080318

REACTIONS (3)
  - ELECTROMECHANICAL DISSOCIATION [None]
  - POST-TRAUMATIC STRESS DISORDER [None]
  - SYNCOPE [None]
